FAERS Safety Report 5859543-6 (Version None)
Quarter: 2008Q3

REPORT INFORMATION
  Report Type: 
  Country: None (occurrence: None)
  Receive Date: 20080827
  Receipt Date: 20080821
  Transmission Date: 20090109
  Serious: Yes (Hospitalization)
  Sender: FDA-Public Use
  Company Number: A0744558A

PATIENT
  Age: 55 Year
  Sex: Male
  Weight: 76.4 kg

DRUGS (7)
  1. AVANDIA [Suspect]
     Dosage: 2MG PER DAY
     Route: 048
     Dates: start: 20051001, end: 20071101
  2. METFORMIN HCL [Concomitant]
  3. GLUCOPHAGE [Concomitant]
  4. ATORVASTATIN [Concomitant]
  5. GLUCOTROL [Concomitant]
  6. FOSAMAX [Concomitant]
  7. CAPTOPRIL [Concomitant]

REACTIONS (3)
  - CEREBROVASCULAR ACCIDENT [None]
  - MYOCARDIAL ISCHAEMIA [None]
  - PARALYSIS [None]
